FAERS Safety Report 13490619 (Version 4)
Quarter: 2017Q3

REPORT INFORMATION
  Report Type: Report from Study
  Country: None (occurrence: NL)
  Receive Date: 20170427
  Receipt Date: 20170714
  Transmission Date: 20171127
  Serious: Yes (Other)
  Sender: FDA-Public Use
  Company Number: NL-ABBVIE-17P-114-1955134-00

PATIENT
  Sex: Female

DRUGS (3)
  1. DUODOPA [Suspect]
     Active Substance: CARBIDOPA\LEVODOPA
     Route: 050
  2. DUODOPA [Suspect]
     Active Substance: CARBIDOPA\LEVODOPA
     Indication: PARKINSON^S DISEASE
     Dosage: MD: 5.9, CD: 4.4, ED: 1.0
     Route: 050
     Dates: start: 20071022
  3. MOVICOLON [Concomitant]
     Active Substance: POLYETHYLENE GLYCOL 3350\POTASSIUM CHLORIDE\SODIUM BICARBONATE\SODIUM CHLORIDE
     Indication: ABNORMAL FAECES

REACTIONS (22)
  - Transient ischaemic attack [Recovered/Resolved]
  - Intracranial mass [Unknown]
  - Muscle spasms [Not Recovered/Not Resolved]
  - Hydrocephalus [Unknown]
  - Brain injury [Unknown]
  - Computerised tomogram head abnormal [Unknown]
  - Spinal laminectomy [Unknown]
  - Cough [Unknown]
  - Heart rate decreased [Unknown]
  - Gait disturbance [Unknown]
  - Dysphagia [Unknown]
  - Anxiety [Unknown]
  - Affect lability [Not Recovered/Not Resolved]
  - Cerebral atrophy [Unknown]
  - Dyskinesia [Unknown]
  - Musculoskeletal stiffness [Not Recovered/Not Resolved]
  - Peroneal nerve palsy [Not Recovered/Not Resolved]
  - Frequent bowel movements [Unknown]
  - Speech disorder [Unknown]
  - Bundle branch block left [Unknown]
  - Memory impairment [Unknown]
  - Confusional state [Unknown]

NARRATIVE: CASE EVENT DATE: 2014
